FAERS Safety Report 24365830 (Version 1)
Quarter: 2024Q3

REPORT INFORMATION
  Report Type: Spontaneous
  Country: US (occurrence: US)
  Receive Date: 20240926
  Receipt Date: 20240926
  Transmission Date: 20241017
  Serious: No
  Sender: MERCK
  Company Number: US-009507513-2409USA008263

PATIENT
  Sex: Male

DRUGS (2)
  1. TEMODAR [Suspect]
     Active Substance: TEMOZOLOMIDE
     Indication: Glioneuronal tumour
     Dosage: UNK
     Route: 048
  2. LOMUSTINE [Concomitant]
     Active Substance: LOMUSTINE
     Indication: Glioneuronal tumour
     Dosage: UNK

REACTIONS (1)
  - Product use in unapproved indication [Unknown]
